FAERS Safety Report 10031447 (Version 2)
Quarter: 2014Q1

REPORT INFORMATION
  Report Type: Report from Study
  Country: FR (occurrence: FR)
  Receive Date: 20140324
  Receipt Date: 20140324
  Transmission Date: 20141002
  Serious: Yes (Hospitalization)
  Sender: FDA-Public Use
  Company Number: FR-ROCHE-1164816

PATIENT
  Age: 71 Year
  Sex: Female

DRUGS (7)
  1. RITUXIMAB [Suspect]
     Indication: RHEUMATOID ARTHRITIS
     Dosage: DAY 15 DOSE ON 18-JUL-2008
     Route: 041
     Dates: start: 20080704
  2. RITUXIMAB [Suspect]
     Dosage: (D15) ON 27-JAN-2009
     Route: 041
     Dates: start: 20090113
  3. RITUXIMAB [Suspect]
     Dosage: (D15) ON 24-FEB-2010
     Route: 041
     Dates: start: 20100210
  4. RITUXIMAB [Suspect]
     Route: 041
     Dates: end: 20100908
  5. TOCILIZUMAB [Suspect]
     Indication: RHEUMATOID ARTHRITIS
     Route: 065
     Dates: start: 20100908
  6. METHOTREXATE [Concomitant]
     Route: 065
     Dates: start: 20080718
  7. CORTANCYL [Concomitant]
     Route: 065
     Dates: start: 20080718

REACTIONS (11)
  - Escherichia urinary tract infection [Recovered/Resolved]
  - Bladder prolapse [Recovered/Resolved]
  - Depression suicidal [Recovering/Resolving]
  - Cough [Recovered/Resolved]
  - Asthenia [Not Recovered/Not Resolved]
  - Haemorrhoids [Not Recovered/Not Resolved]
  - Nausea [Recovered/Resolved]
  - Dyspepsia [Recovered/Resolved]
  - Depression [Not Recovered/Not Resolved]
  - Diverticulitis [Recovered/Resolved]
  - Gastrointestinal infection [Recovered/Resolved]
